FAERS Safety Report 8050698-4 (Version None)
Quarter: 2012Q1

REPORT INFORMATION
  Report Type: 
  Country: None (occurrence: None)
  Receive Date: 20120117
  Receipt Date: 20120117
  Transmission Date: 20120608
  Serious: Yes (Other)
  Sender: FDA-Public Use
  Company Number: None

PATIENT
  Age: 21 Year
  Sex: Male
  Weight: 72.574 kg

DRUGS (1)
  1. MEFLOQUINE HYDROCHLORIDE [Suspect]
     Indication: MALARIA PROPHYLAXIS
     Dosage: 250MG
     Route: 048
     Dates: start: 19921215, end: 19930330

REACTIONS (20)
  - EMOTIONAL DISORDER [None]
  - ANGER [None]
  - MIGRAINE WITH AURA [None]
  - TINNITUS [None]
  - PARAESTHESIA [None]
  - TREMOR [None]
  - INSOMNIA [None]
  - DEPRESSION [None]
  - DEAFNESS [None]
  - EAR PAIN [None]
  - EAR DISCOMFORT [None]
  - NIGHT SWEATS [None]
  - PANIC ATTACK [None]
  - PHOTOPHOBIA [None]
  - AMNESIA [None]
  - LENTIGO [None]
  - FATIGUE [None]
  - HEPATIC PAIN [None]
  - GLARE [None]
  - CHILLS [None]
